FAERS Safety Report 4473610-3 (Version None)
Quarter: 2004Q4

REPORT INFORMATION
  Report Type: 
  Country: None (occurrence: None)
  Receive Date: 20041013
  Receipt Date: 20041011
  Transmission Date: 20050328
  Serious: Yes (Hospitalization)
  Sender: FDA-Public Use
  Company Number: DE-MERCK-0410DEU00333

PATIENT
  Age: 55 Year
  Sex: Female

DRUGS (1)
  1. ROFECOXIB [Suspect]
     Route: 048
     Dates: start: 20000101, end: 20040101

REACTIONS (1)
  - CEREBROVASCULAR ACCIDENT [None]
